FAERS Safety Report 10308113 (Version 2)
Quarter: 2014Q3

REPORT INFORMATION
  Report Type: Spontaneous
  Country: US (occurrence: US)
  Receive Date: 20140716
  Receipt Date: 20140716
  Transmission Date: 20150326
  Serious: Yes (Hospitalization)
  Sender: FDA-Public Use
  Company Number: US-009507513-2009SP023247

PATIENT
  Sex: Female
  Weight: 73.3 kg

DRUGS (2)
  1. INVESTIGATIONAL DRUG (UNSPECIFIED) [Concomitant]
     Active Substance: INVESTIGATIONAL PRODUCT
     Dosage: UNKNOWN RESEARCH STUDY PILL
     Dates: end: 20070821
  2. NUVARING [Suspect]
     Active Substance: ETHINYL ESTRADIOL\ETONOGESTREL
     Indication: CONTRACEPTION
     Dates: start: 200702, end: 20070821

REACTIONS (3)
  - Urinary tract infection [Unknown]
  - Deep vein thrombosis [Recovered/Resolved with Sequelae]
  - Anaemia [Unknown]

NARRATIVE: CASE EVENT DATE: 20070820
